FAERS Safety Report 9419941 (Version 1)
Quarter: 2013Q3

REPORT INFORMATION
  Report Type: Spontaneous
  Country: US (occurrence: None)
  Receive Date: 20130724
  Receipt Date: 20130724
  Transmission Date: 20140515
  Serious: Yes (Other)
  Sender: FDA-Public Use
  Company Number: None

PATIENT
  Age: 51 Year
  Sex: Male
  Weight: 89.1 kg

DRUGS (1)
  1. METHYLPREDNISOLONE [Suspect]
     Indication: BACK PAIN
     Dates: start: 20120531

REACTIONS (1)
  - Chorioretinopathy [None]
